FAERS Safety Report 8158033-8 (Version None)
Quarter: 2012Q1

REPORT INFORMATION
  Report Type: 
  Country: None (occurrence: None)
  Receive Date: 20120222
  Receipt Date: 20120215
  Transmission Date: 20120608
  Serious: Yes (Hospitalization)
  Sender: FDA-Public Use
  Company Number: PHHY2012IT013143

PATIENT
  Age: 50 Year
  Sex: Female

DRUGS (4)
  1. VALIUM [Suspect]
     Dosage: 2 MG, UNK
     Dates: start: 20120124, end: 20120124
  2. TEGRETOL [Suspect]
     Indication: EPILEPSY
     Route: 048
  3. TOPAMAX [Suspect]
     Indication: EPILEPSY
     Dosage: 100 MG, UNK
     Route: 048
     Dates: start: 20120124, end: 20120124
  4. TEGRETOL [Suspect]
     Dosage: 30 DF (30 POSOLOGICAL UNITS)
     Route: 048
     Dates: start: 20120124, end: 20120124

REACTIONS (4)
  - SELF INJURIOUS BEHAVIOUR [None]
  - INCORRECT DOSE ADMINISTERED [None]
  - DEPRESSED LEVEL OF CONSCIOUSNESS [None]
  - SLOW SPEECH [None]
